FAERS Safety Report 7391864-0 (Version None)
Quarter: 2011Q2

REPORT INFORMATION
  Report Type: 
  Country: None (occurrence: None)
  Receive Date: 20110404
  Receipt Date: 20110329
  Transmission Date: 20111010
  Serious: Yes (Other)
  Sender: FDA-Public Use
  Company Number: GB-SANOFI-AVENTIS-2011SA019165

PATIENT

DRUGS (3)
  1. CYCLOPHOSPHAMIDE [Concomitant]
     Route: 065
  2. ADRIAMYCIN PFS [Concomitant]
     Route: 065
  3. TAXOTERE [Suspect]
     Route: 065

REACTIONS (2)
  - COLON GANGRENE [None]
  - COLITIS ISCHAEMIC [None]
